FAERS Safety Report 13668767 (Version 1)
Quarter: 2017Q2

REPORT INFORMATION
  Report Type: Spontaneous
  Country: US (occurrence: US)
  Receive Date: 20170620
  Receipt Date: 20170620
  Transmission Date: 20170830
  Serious: No
  Sender: FDA-Public Use
  Company Number: None

PATIENT
  Age: 76 Year
  Sex: Female
  Weight: 63.56 kg

DRUGS (3)
  1. ALENDRONATE [Concomitant]
     Active Substance: ALENDRONATE SODIUM
  2. DIFLUCAN [Suspect]
     Active Substance: FLUCONAZOLE
     Indication: FUNGAL INFECTION
     Route: 048
     Dates: start: 20170511, end: 20170525
  3. PRILOSEC [Concomitant]
     Active Substance: OMEPRAZOLE MAGNESIUM

REACTIONS (10)
  - Pruritus [None]
  - Mental impairment [None]
  - Sleep disorder [None]
  - Rash generalised [None]
  - Urticaria [None]
  - Fatigue [None]
  - Weight decreased [None]
  - Chills [None]
  - Hyperhidrosis [None]
  - Impaired driving ability [None]

NARRATIVE: CASE EVENT DATE: 20170511
